FAERS Safety Report 13582725 (Version 1)
Quarter: 2017Q2

REPORT INFORMATION
  Report Type: Spontaneous
  Country: AR (occurrence: AR)
  Receive Date: 20170525
  Receipt Date: 20170525
  Transmission Date: 20170830
  Serious: Yes (Other)
  Sender: FDA-Public Use
  Company Number: AR-PFIZER INC-2016455557

PATIENT
  Age: 68 Year
  Sex: Male

DRUGS (2)
  1. XELJANZ [Suspect]
     Active Substance: TOFACITINIB CITRATE
     Indication: RHEUMATOID ARTHRITIS
     Dosage: 5 MG, 2X/DAY
     Dates: start: 20160622
  2. XELJANZ [Suspect]
     Active Substance: TOFACITINIB CITRATE
     Dosage: 5 MG, 2X/DAY
     Dates: start: 201701, end: 201701

REACTIONS (7)
  - Pain [Unknown]
  - Feeling abnormal [Recovered/Resolved]
  - Lower limb fracture [Unknown]
  - Arthralgia [Not Recovered/Not Resolved]
  - Visual acuity reduced [Not Recovered/Not Resolved]
  - Abasia [Not Recovered/Not Resolved]
  - Swelling [Recovered/Resolved]

NARRATIVE: CASE EVENT DATE: 201606
